FAERS Safety Report 10156378 (Version 1)
Quarter: 2014Q2

REPORT INFORMATION
  Report Type: Spontaneous
  Country: FR (occurrence: FR)
  Receive Date: 20140507
  Receipt Date: 20140507
  Transmission Date: 20141212
  Serious: Yes (Hospitalization)
  Sender: FDA-Public Use
  Company Number: FR-BRISTOL-MYERS SQUIBB COMPANY-20695748

PATIENT
  Age: 83 Year
  Sex: Female

DRUGS (1)
  1. COUMADIN TABS 2 MG [Suspect]
     Route: 048

REACTIONS (3)
  - Haematoma [Recovered/Resolved]
  - Anaemia [Recovered/Resolved]
  - Cardiac failure [Recovered/Resolved]
